FAERS Safety Report 21403718 (Version 1)
Quarter: 2022Q4

REPORT INFORMATION
  Report Type: Spontaneous
  Country: US (occurrence: None)
  Receive Date: 20221002
  Receipt Date: 20221002
  Transmission Date: 20230113
  Serious: Yes (Other)
  Sender: FDA-Public Use
  Company Number: None

PATIENT
  Age: 68 Year
  Sex: Female
  Weight: 53.1 kg

DRUGS (4)
  1. AMLODIPINE BESYLATE [Suspect]
     Active Substance: AMLODIPINE BESYLATE
     Indication: Vascular graft
     Dosage: OTHER QUANTITY : 1 TABLET(S);?FREQUENCY : DAILY;?
     Route: 048
     Dates: start: 20220907, end: 20220929
  2. mycopenolate [Concomitant]
  3. HYDROXYCHLOROQUINE [Concomitant]
     Active Substance: HYDROXYCHLOROQUINE
  4. FENTANYL [Concomitant]

REACTIONS (10)
  - Joint stiffness [None]
  - Neuropathy peripheral [None]
  - Dysstasia [None]
  - Gait inability [None]
  - Infection [None]
  - Adverse drug reaction [None]
  - Swelling [None]
  - Erythema [None]
  - Pain [None]
  - Condition aggravated [None]

NARRATIVE: CASE EVENT DATE: 20220921
